FAERS Safety Report 13140493 (Version 2)
Quarter: 2017Q3

REPORT INFORMATION
  Report Type: Spontaneous
  Country: IT (occurrence: IT)
  Receive Date: 20170123
  Receipt Date: 20170912
  Transmission Date: 20171127
  Serious: Yes (Other)
  Sender: FDA-Public Use
  Company Number: IT-TEVA-731117ACC

PATIENT
  Age: 81 Year
  Sex: Male
  Weight: 102 kg

DRUGS (2)
  1. TRIPTORELIN EMBONATE [Concomitant]
     Active Substance: TRIPTORELIN PAMOATE
     Indication: PROSTATE CANCER
     Route: 030
     Dates: start: 20071121, end: 20150420
  2. BICALUTAMIDE TEVA - 50 MG COMPRESSE RIVESTITE CON FILM - TEVA ITALIA S [Suspect]
     Active Substance: BICALUTAMIDE
     Indication: PROSTATE CANCER
     Dosage: 50 MILLIGRAM DAILY;
     Route: 048
     Dates: start: 20141230, end: 20150420

REACTIONS (4)
  - Diarrhoea [Recovering/Resolving]
  - Rash erythematous [Recovering/Resolving]
  - Skin ulcer [Recovering/Resolving]
  - Eyelid oedema [Recovering/Resolving]

NARRATIVE: CASE EVENT DATE: 20150420
